FAERS Safety Report 25335641 (Version 1)
Quarter: 2025Q2

REPORT INFORMATION
  Report Type: Spontaneous
  Country: US (occurrence: None)
  Receive Date: 20250519
  Receipt Date: 20250519
  Transmission Date: 20250716
  Serious: Yes (Life-Threatening)
  Sender: FDA-CTU
  Company Number: None

PATIENT
  Age: 54 Year
  Sex: Female
  Weight: 65.25 kg

DRUGS (2)
  1. CITALOPRAM [Suspect]
     Active Substance: CITALOPRAM
     Indication: Obsessive-compulsive disorder
     Route: 048
     Dates: start: 19970501
  2. CITALOPRAM [Suspect]
     Active Substance: CITALOPRAM
     Indication: Anxiety

REACTIONS (19)
  - Sexual dysfunction [None]
  - Withdrawal syndrome [None]
  - Loss of personal independence in daily activities [None]
  - Impaired work ability [None]
  - Anxiety [None]
  - Anger [None]
  - Anger [None]
  - Frustration tolerance decreased [None]
  - Feeling of despair [None]
  - Depression [None]
  - Crying [None]
  - Electric shock sensation [None]
  - Amnesia [None]
  - Insomnia [None]
  - Nausea [None]
  - Irritability [None]
  - Mood swings [None]
  - Nervous system disorder [None]
  - Balance disorder [None]

NARRATIVE: CASE EVENT DATE: 19970501
